FAERS Safety Report 17451106 (Version 1)
Quarter: 2020Q1

REPORT INFORMATION
  Report Type: Spontaneous
  Country: CH (occurrence: CH)
  Receive Date: 20200224
  Receipt Date: 20200224
  Transmission Date: 20200409
  Serious: Yes (Hospitalization)
  Sender: FDA-Public Use
  Company Number: CH-PFIZER INC-2020073033

PATIENT
  Age: 56 Year
  Sex: Male
  Weight: 72.7 kg

DRUGS (26)
  1. BRILIQUE [Suspect]
     Active Substance: TICAGRELOR
     Indication: ACUTE MYOCARDIAL INFARCTION
     Dosage: 180 MG, DAILY (90 MG, 2X/DAY)
     Route: 048
     Dates: start: 20200118, end: 20200129
  2. REDOXON [ASCORBIC ACID] [Concomitant]
     Dosage: 1000 MG, 1X/DAY
     Route: 048
     Dates: start: 20200120
  3. NOVALGIN (METAMIZOLE SODIUM) [Concomitant]
     Active Substance: METAMIZOLE SODIUM
     Dosage: 1000 MG, 3X/DAY
     Route: 048
     Dates: start: 20200119, end: 20200120
  4. ALDACTONE [Concomitant]
     Active Substance: SPIRONOLACTONE
     Dosage: 25 MG, 2X/DAY
     Route: 048
     Dates: start: 20200119
  5. LIQUEMIN [HEPARIN SODIUM] [Concomitant]
     Dosage: 10000 IU, DAILY
     Route: 042
     Dates: start: 20200118, end: 20200121
  6. FRAGMIN [Suspect]
     Active Substance: DALTEPARIN SODIUM
     Dosage: 5000 IU, DAILY
     Route: 058
     Dates: start: 20200122
  7. ASPIRIN CARDIO [Suspect]
     Active Substance: ASPIRIN
     Indication: ACUTE MYOCARDIAL INFARCTION
     Dosage: 100 MG, DAILY
     Route: 048
     Dates: start: 20200118
  8. POTASSIUM BICARBONATE/POTASSIUM CITRATE [Concomitant]
     Active Substance: POTASSIUM BICARBONATE\POTASSIUM CITRATE
     Dosage: 30 MMOL, UNK
     Route: 048
     Dates: start: 20200117
  9. BENERVA [Concomitant]
     Active Substance: THIAMINE HYDROCHLORIDE
     Dosage: 300 MG, 1X/DAY
     Route: 048
     Dates: start: 20200119, end: 20200121
  10. MAGNESIOCARD [Concomitant]
     Active Substance: MAGNESIUM ASPARTATE HYDROCHLORIDE
     Dosage: 10 MMOL, UNK
     Route: 048
     Dates: start: 20200117
  11. PANTOZOL [Concomitant]
     Active Substance: PANTOPRAZOLE SODIUM
     Dosage: 20 MG, 1X/DAY
     Route: 048
     Dates: start: 20200117
  12. TOREM [TORASEMIDE] [Concomitant]
     Active Substance: TORSEMIDE
     Dosage: 20 MG, 1X/DAY
     Route: 048
     Dates: start: 20200122
  13. CLOPIDOGREL [Suspect]
     Active Substance: CLOPIDOGREL BISULFATE
     Dosage: LOADING DOSE: 300 MG
  14. CAPTOPRIL. [Concomitant]
     Active Substance: CAPTOPRIL
     Dosage: 6.25 MG, CYCLIC (EVERY 6 HRS)
     Route: 048
     Dates: start: 20200119, end: 20200122
  15. ROCEPHIN [Concomitant]
     Active Substance: CEFTRIAXONE SODIUM
     Dosage: 2 G, 1X/DAY
     Route: 042
     Dates: start: 20200119, end: 20200122
  16. ATROVENT [Concomitant]
     Active Substance: IPRATROPIUM BROMIDE
     Dosage: 250 UG, 3X/DAY
     Route: 055
     Dates: start: 20200117
  17. METRONIDAZOLE BIOREN [Concomitant]
     Active Substance: METRONIDAZOLE
     Dosage: 500 MG, 3X/DAY
     Route: 042
     Dates: start: 20200118, end: 20200120
  18. POTASSIUM PHOSPHATE MONOBASIC [Concomitant]
     Active Substance: POTASSIUM PHOSPHATE, MONOBASIC
     Dosage: 20 MMOL, 1X/DAY
     Route: 042
     Dates: start: 20200119, end: 20200120
  19. CO-AMOXI [Concomitant]
     Active Substance: AMOXICILLIN\CLAVULANATE POTASSIUM
     Dosage: 1000 MG, 3X/DAY
     Route: 048
     Dates: start: 20200120, end: 20200124
  20. ENTRESTO [Concomitant]
     Active Substance: SACUBITRIL\VALSARTAN
     Route: 048
     Dates: start: 20200124
  21. RAMIPRIL. [Concomitant]
     Active Substance: RAMIPRIL
  22. DAFALGAN [Concomitant]
     Active Substance: ACETAMINOPHEN
     Dosage: 500 MG, CYCLIC (EVERY 6 HRS)
     Route: 048
     Dates: start: 20200118, end: 20200120
  23. ATORVASTATIN [Concomitant]
     Active Substance: ATORVASTATIN
     Dosage: 80 MG, 1X/DAY
     Route: 048
     Dates: start: 20200118
  24. VENTOLINE [SALBUTAMOL] [Concomitant]
     Active Substance: ALBUTEROL SULFATE
     Dosage: 1.25 MG, 3X/DAY
     Route: 055
     Dates: start: 20200117
  25. SUPRADYN N [ASCORBIC ACID;BIOTIN;CALCIUM;CALCIUM GLYCEROPHOSPHATE;CALC [Concomitant]
     Dosage: UNK UNK, 1X/DAY
     Route: 048
     Dates: start: 20200119, end: 20200121
  26. LASIX [Concomitant]
     Active Substance: FUROSEMIDE
     Route: 042
     Dates: start: 20200117, end: 20200121

REACTIONS (6)
  - Dizziness [Unknown]
  - Cold sweat [Unknown]
  - Loss of consciousness [Recovered/Resolved]
  - Lower gastrointestinal haemorrhage [Recovered/Resolved]
  - Chest pain [Unknown]
  - Haematochezia [Unknown]

NARRATIVE: CASE EVENT DATE: 20200127
